FAERS Safety Report 7539600-9 (Version None)
Quarter: 2011Q2

REPORT INFORMATION
  Report Type: 
  Country: None (occurrence: None)
  Receive Date: 20110609
  Receipt Date: 20110609
  Transmission Date: 20111010
  Serious: Yes (Hospitalization)
  Sender: FDA-Public Use
  Company Number: None

PATIENT
  Sex: Female
  Weight: 63.2 kg

DRUGS (3)
  1. SYNTHROID [Concomitant]
  2. DOXORUBICIN HYDROCHLORIDE [Suspect]
     Dosage: 103 MG
  3. CYCLOPHOSPHAMIDE [Suspect]
     Dosage: 1038 MG

REACTIONS (9)
  - CONFUSIONAL STATE [None]
  - STOMATITIS [None]
  - CONVULSION [None]
  - EPISTAXIS [None]
  - HYPONATRAEMIA [None]
  - UNRESPONSIVE TO STIMULI [None]
  - MENTAL STATUS CHANGES [None]
  - WATER INTOXICATION [None]
  - OROPHARYNGEAL PAIN [None]
